FAERS Safety Report 9842108 (Version 1)
Quarter: 2014Q1

REPORT INFORMATION
  Report Type: Spontaneous
  Country: US (occurrence: None)
  Receive Date: 20140123
  Receipt Date: 20140123
  Transmission Date: 20141002
  Serious: No
  Sender: FDA-Public Use
  Company Number: None

PATIENT
  Age: 46 Year
  Sex: Female

DRUGS (7)
  1. TECFIDERA [Suspect]
     Indication: MULTIPLE SCLEROSIS
     Route: 048
     Dates: start: 201310
  2. B-2 [Concomitant]
  3. CYCLOBENZAPRINE [Concomitant]
  4. TIZANIDINE [Concomitant]
  5. TRAZODONE [Concomitant]
  6. ADVIL [Concomitant]
  7. PHENERGAN [Concomitant]

REACTIONS (2)
  - Systemic lupus erythematosus rash [None]
  - Multiple sclerosis [None]
